FAERS Safety Report 22278635 (Version 3)
Quarter: 2023Q2

REPORT INFORMATION
  Report Type: Spontaneous
  Country: CZ (occurrence: CZ)
  Receive Date: 20230503
  Receipt Date: 20230515
  Transmission Date: 20230722
  Serious: Yes (Hospitalization, Other)
  Sender: FDA-Public Use
  Company Number: CZ-MYLANLABS-2023M1041801

PATIENT
  Age: 45 Year
  Sex: Male

DRUGS (1)
  1. ADALIMUMAB [Suspect]
     Active Substance: ADALIMUMAB
     Indication: Psoriatic arthropathy
     Dosage: 40 MILLIGRAM, BIWEEKLY
     Route: 058
     Dates: end: 2020

REACTIONS (2)
  - Extradural abscess [Unknown]
  - Arthritis bacterial [Unknown]

NARRATIVE: CASE EVENT DATE: 20200101
